FAERS Safety Report 7111029-7 (Version None)
Quarter: 2010Q4

REPORT INFORMATION
  Report Type: 
  Country: None (occurrence: None)
  Receive Date: 20101118
  Receipt Date: 20101109
  Transmission Date: 20110411
  Serious: Yes (Disabling)
  Sender: FDA-Public Use
  Company Number: NL-B.I. PHARMACEUTICALS,INC./RIDGEFIELD-2010-DE-04704DE

PATIENT
  Sex: Female
  Weight: 82 kg

DRUGS (9)
  1. DABIGATRAN [Suspect]
     Indication: CEREBROVASCULAR ACCIDENT PROPHYLAXIS
     Dosage: BLINDED DOSE
     Route: 048
     Dates: start: 20060727, end: 20100902
  2. DABIGATRAN [Suspect]
     Indication: ATRIAL FIBRILLATION
  3. VERAPAMIL [Concomitant]
     Indication: ATRIAL FIBRILLATION
     Dosage: 240 MG
     Route: 048
     Dates: start: 20060116
  4. PANTOPRAZOLE SODIUM [Concomitant]
     Indication: GASTRIC CANCER
     Dosage: 20 MG
     Route: 048
     Dates: start: 20031201
  5. SIMVASTATIN [Concomitant]
     Indication: MYOCARDIAL INFARCTION
     Dosage: 20 MG
     Route: 048
     Dates: start: 20020101
  6. CARBASALAT CALCIUM [Concomitant]
     Indication: MYOCARDIAL INFARCTION
     Dosage: 100 MG
     Route: 048
     Dates: start: 20020101
  7. PROPRANOLOL RETARD [Concomitant]
     Indication: HYPERTENSION
     Dosage: 160 MG
     Route: 048
     Dates: start: 20080101
  8. FUROSEMIDE [Concomitant]
     Indication: CARDIAC FAILURE
     Dosage: 80 MG
     Route: 048
     Dates: start: 20000101
  9. LANOXIN [Concomitant]
     Indication: ATRIAL FIBRILLATION
     Dosage: 0.125 MG
     Route: 048
     Dates: start: 20090101

REACTIONS (1)
  - RETINAL VEIN OCCLUSION [None]
